FAERS Safety Report 9736091 (Version 1)
Quarter: 2013Q4

REPORT INFORMATION
  Report Type: Spontaneous
  Country: FR (occurrence: FR)
  Receive Date: 20131206
  Receipt Date: 20131206
  Transmission Date: 20140711
  Serious: Yes (Other)
  Sender: FDA-Public Use
  Company Number: FR-GLAXOSMITHKLINE-B0949335A

PATIENT
  Age: 70 Year
  Sex: Female

DRUGS (15)
  1. ZOPHREN [Suspect]
     Indication: PREMEDICATION
     Dosage: 4MG SINGLE DOSE
     Route: 040
     Dates: start: 20131102, end: 20131102
  2. CARDENSIEL [Suspect]
     Indication: PRODUCT USED FOR UNKNOWN INDICATION
     Dosage: 5MG PER DAY
     Route: 048
     Dates: start: 20130927, end: 20131102
  3. VFEND [Suspect]
     Indication: ASPERGILLUS INFECTION
     Dosage: 250MG TWICE PER DAY
     Route: 048
     Dates: start: 20130821, end: 20131102
  4. ZELITREX [Concomitant]
  5. EUPRESSYL [Concomitant]
     Dosage: 120MG TWICE PER DAY
  6. KARDEGIC [Concomitant]
     Dosage: 75MG PER DAY
  7. CALCIPARINE [Concomitant]
     Dosage: 14000IU PER DAY
     Dates: start: 20130808
  8. SINGULAIR [Concomitant]
     Dosage: 1UNIT PER DAY
  9. KAYEXALATE [Concomitant]
  10. LIPANTHYL [Concomitant]
     Dosage: 160MG PER DAY
  11. FUROSEMIDE [Concomitant]
     Dosage: 20MG PER DAY
  12. BACTRIM [Concomitant]
  13. AMSACRINE [Concomitant]
  14. NICARDIPINE [Concomitant]
  15. BISOPROLOL [Concomitant]

REACTIONS (3)
  - Atrioventricular block complete [Recovered/Resolved]
  - Bradycardia [Recovered/Resolved]
  - Blood pressure decreased [Recovered/Resolved]
